FAERS Safety Report 24325603 (Version 2)
Quarter: 2024Q4

REPORT INFORMATION
  Report Type: Report from Study
  Country: ZA (occurrence: ZA)
  Receive Date: 20240917
  Receipt Date: 20241209
  Transmission Date: 20250114
  Serious: Yes (Other)
  Sender: ALEXION PHARMACEUTICALS
  Company Number: 2024A205353

PATIENT
  Age: 56 Year

DRUGS (9)
  1. BUDESONIDE\FORMOTEROL [Suspect]
     Active Substance: BUDESONIDE\FORMOTEROL
     Indication: Asthma
     Dosage: FREQUENCY: UNK
  2. UNSPECIFIED INGREDIENT [Concomitant]
     Active Substance: UNSPECIFIED INGREDIENT
  3. BRONCOL [Concomitant]
  4. UNSPECIFIED INGREDIENT [Concomitant]
     Active Substance: UNSPECIFIED INGREDIENT
     Indication: Hypersensitivity
  5. PROPRANOLOL HYDROCHLORIDE [Concomitant]
     Active Substance: PROPRANOLOL HYDROCHLORIDE
     Indication: Hypertension
  6. CLOBAZAM [Concomitant]
     Active Substance: CLOBAZAM
     Indication: Hypersensitivity
  7. FUROSEMIDE [Concomitant]
     Active Substance: FUROSEMIDE
     Indication: Hypertension
  8. UNSPECIFIED INGREDIENT [Concomitant]
     Active Substance: UNSPECIFIED INGREDIENT
     Indication: Anxiety
  9. MIRABEGRON [Concomitant]
     Active Substance: MIRABEGRON
     Indication: Incontinence

REACTIONS (5)
  - Pneumonia [Unknown]
  - Oxygen saturation decreased [Unknown]
  - Splenic rupture [Unknown]
  - Cough [Unknown]
  - Tendon rupture [Unknown]
